FAERS Safety Report 9052948 (Version 1)
Quarter: 2013Q1

REPORT INFORMATION
  Report Type: Spontaneous
  Country: US (occurrence: US)
  Receive Date: 20130208
  Receipt Date: 20130208
  Transmission Date: 20140127
  Serious: No
  Sender: FDA-Public Use
  Company Number: US-009507513-1302USA000577

PATIENT
  Age: 66 Year
  Sex: 0

DRUGS (2)
  1. INTERFERON ALFA-2B [Suspect]
     Indication: MYCOSIS FUNGOIDES
     Dosage: 3 MILLION UNITS, TIW
     Route: 058
  2. INTERFERON ALFA-2B [Suspect]
     Dosage: 1.5 MILLION UNITS, TIW
     Route: 058

REACTIONS (2)
  - Nausea [Recovered/Resolved]
  - Vomiting [Recovered/Resolved]
